FAERS Safety Report 10885050 (Version 1)
Quarter: 2015Q1

REPORT INFORMATION
  Report Type: Spontaneous
  Country: US (occurrence: US)
  Receive Date: 20150304
  Receipt Date: 20150304
  Transmission Date: 20150721
  Serious: No
  Sender: FDA-Public Use
  Company Number: US-TEVA-485832USA

PATIENT
  Age: 8 Year
  Sex: Female
  Weight: 34.01 kg

DRUGS (2)
  1. CETIRIZINE W/PSEUDOEPHEDRINE [Suspect]
     Active Substance: CETIRIZINE HYDROCHLORIDE\PSEUDOEPHEDRINE HYDROCHLORIDE
     Indication: ACCIDENTAL EXPOSURE TO PRODUCT
     Dosage: CETIRIZINE HYDROCHLORIDE 5 MG PSEUDOEPHEDRINE HYDROCHLORIDE 120 MG
     Route: 048
     Dates: start: 20140527, end: 20140527
  2. CETIRIZINE [Concomitant]
     Active Substance: CETIRIZINE HYDROCHLORIDE
     Dates: start: 2013

REACTIONS (4)
  - Drug administered to patient of inappropriate age [Unknown]
  - Wrong technique in drug usage process [Unknown]
  - Throat irritation [Recovered/Resolved]
  - Foreign body [Recovered/Resolved]

NARRATIVE: CASE EVENT DATE: 20140527
